FAERS Safety Report 8178732-1 (Version None)
Quarter: 2012Q1

REPORT INFORMATION
  Report Type: 
  Country: None (occurrence: None)
  Receive Date: 20120301
  Receipt Date: 20120301
  Transmission Date: 20120608
  Serious: Yes (Life-Threatening, Other)
  Sender: FDA-Public Use
  Company Number: None

PATIENT

DRUGS (1)
  1. AVELOX [Suspect]
     Indication: PRODUCT USED FOR UNKNOWN INDICATION
     Dosage: 1 PILL A DAY
     Dates: start: 20120225, end: 20120229

REACTIONS (7)
  - VISUAL IMPAIRMENT [None]
  - INSOMNIA [None]
  - PRODUCT QUALITY ISSUE [None]
  - ARTHRALGIA [None]
  - TENDONITIS [None]
  - SUICIDAL IDEATION [None]
  - MALAISE [None]
